FAERS Safety Report 4280341-1 (Version None)
Quarter: 2004Q1

REPORT INFORMATION
  Report Type: 
  Country: None (occurrence: None)
  Receive Date: 20040127
  Receipt Date: 20031205
  Transmission Date: 20041129
  Serious: Yes (Life-Threatening, Hospitalization)
  Sender: FDA-Public Use
  Company Number: NSADSS2001036149

PATIENT
  Age: 58 Year
  Sex: Female

DRUGS (16)
  1. REMICADE [Suspect]
     Indication: RHEUMATOID ARTHRITIS
     Dosage: 300 MG, 1 IN 1 AS NECESSARY, INTRAVENOUS DRIP
     Route: 041
     Dates: start: 20010628, end: 20010628
  2. REMICADE [Suspect]
     Indication: RHEUMATOID ARTHRITIS
     Dosage: 300 MG, 1 IN 1 AS NECESSARY, INTRAVENOUS DRIP
     Route: 041
     Dates: start: 20010727, end: 20010727
  3. REMICADE [Suspect]
     Indication: RHEUMATOID ARTHRITIS
     Dosage: 300 MG, 1 IN 1 AS NECESSARY, INTRAVENOUS DRIP
     Route: 041
     Dates: start: 20010925, end: 20010925
  4. REMICADE [Suspect]
     Indication: RHEUMATOID ARTHRITIS
     Dosage: 300 MG, 1 IN 1 AS NECESSARY, INTRAVENOUS DRIP
     Route: 041
     Dates: start: 20010613, end: 20040613
  5. ARAVA [Suspect]
     Dosage: SEE IMAGE
     Route: 048
     Dates: start: 20010613, end: 20010615
  6. ARAVA [Suspect]
     Dosage: SEE IMAGE
     Route: 048
     Dates: start: 20010616, end: 20010814
  7. ATACAND [Concomitant]
  8. DIFORMIN (METFORMIN HYDROCHLORIDE) TABLETS [Concomitant]
  9. GLYBURIDE [Concomitant]
  10. FURESIS (FUROSEMIDE) TABLETS [Concomitant]
  11. INSULIN PROTAPHAN HUMAN (INSULIN HUMAN INJECTION, ISOPHANE) INJECTION [Concomitant]
  12. NIMED (NIMESULIDE) TABLETS [Concomitant]
  13. ULTRAM [Concomitant]
  14. TOLVON (MIANSERIN HYDROCHLORIDE) TABLETS [Concomitant]
  15. NOZINAN (LEVOMEPROMAZINE) TABLETS [Concomitant]
  16. SERETIDE (SERETIDE) [Concomitant]

REACTIONS (11)
  - AGRANULOCYTOSIS [None]
  - COUGH [None]
  - DYSPNOEA [None]
  - ERYTHEMA [None]
  - FACE OEDEMA [None]
  - INFUSION RELATED REACTION [None]
  - LEUKOPENIA [None]
  - ORAL PAIN [None]
  - PHARYNGOLARYNGEAL PAIN [None]
  - PLATELET COUNT INCREASED [None]
  - PYREXIA [None]
